FAERS Safety Report 15929442 (Version 3)
Quarter: 2024Q1

REPORT INFORMATION
  Report Type: Spontaneous
  Country: US (occurrence: US)
  Receive Date: 20190206
  Receipt Date: 20240209
  Transmission Date: 20240409
  Serious: Yes (Other)
  Sender: FDA-Public Use
  Company Number: US-GILEAD-2019-0387807

PATIENT
  Age: 43 Year
  Sex: Male
  Weight: 74.83 kg

DRUGS (32)
  1. TRUVADA [Suspect]
     Active Substance: EMTRICITABINE\TENOFOVIR DISOPROXIL FUMARATE
     Indication: HIV infection
     Dosage: UNK
     Route: 048
     Dates: start: 2004, end: 2012
  2. TRUVADA [Suspect]
     Active Substance: EMTRICITABINE\TENOFOVIR DISOPROXIL FUMARATE
     Dosage: UNK
     Route: 048
     Dates: start: 20120330, end: 201209
  3. STRIBILD [Suspect]
     Active Substance: COBICISTAT\ELVITEGRAVIR\EMTRICITABINE\TENOFOVIR DISOPROXIL FUMARATE
     Indication: HIV infection
     Dosage: UNK
     Route: 048
     Dates: start: 2012, end: 2016
  4. STRIBILD [Suspect]
     Active Substance: COBICISTAT\ELVITEGRAVIR\EMTRICITABINE\TENOFOVIR DISOPROXIL FUMARATE
     Dosage: UNK
     Route: 048
     Dates: start: 201409, end: 20160415
  5. STRIBILD [Suspect]
     Active Substance: COBICISTAT\ELVITEGRAVIR\EMTRICITABINE\TENOFOVIR DISOPROXIL FUMARATE
     Dosage: UNK
     Route: 048
     Dates: start: 201307, end: 20160415
  6. LORATADINE [Concomitant]
     Active Substance: LORATADINE
  7. LYRICA [Concomitant]
     Active Substance: PREGABALIN
  8. BIKTARVY [Concomitant]
     Active Substance: BICTEGRAVIR SODIUM\EMTRICITABINE\TENOFOVIR ALAFENAMIDE FUMARATE
  9. GENVOYA [Concomitant]
     Active Substance: COBICISTAT\ELVITEGRAVIR\EMTRICITABINE\TENOFOVIR ALAFENAMIDE FUMARATE
  10. NORVIR [Concomitant]
     Active Substance: RITONAVIR
  11. PREZISTA [Concomitant]
     Active Substance: DARUNAVIR ETHANOLATE
  12. AMBIEN [Concomitant]
     Active Substance: ZOLPIDEM TARTRATE
  13. AMOXICILLIN [Concomitant]
     Active Substance: AMOXICILLIN
  14. AZITHROMYCIN [Concomitant]
     Active Substance: AZITHROMYCIN
  15. CEPHALEXIN [Concomitant]
     Active Substance: CEPHALEXIN
  16. CYMBALTA [Concomitant]
     Active Substance: DULOXETINE HYDROCHLORIDE
  17. ESOMEPRAZOLE MAGNESIUM [Concomitant]
     Active Substance: ESOMEPRAZOLE\ESOMEPRAZOLE MAGNESIUM\ESOMEPRAZOLE MAGNESIUM DIHYDRATE
  18. FENTANYL [Concomitant]
     Active Substance: FENTANYL\FENTANYL CITRATE
  19. LEVITRA [Concomitant]
     Active Substance: VARDENAFIL HYDROCHLORIDE
  20. LEVOFLOXACIN [Concomitant]
     Active Substance: LEVOFLOXACIN
  21. METOCLOPRAMIDE [Concomitant]
     Active Substance: METOCLOPRAMIDE
  22. MINOCYCLINE [Concomitant]
     Active Substance: MINOCYCLINE HYDROCHLORIDE
  23. MUCINEX [Concomitant]
     Active Substance: GUAIFENESIN
  24. NAPROXEN [Concomitant]
     Active Substance: NAPROXEN
  25. OMEPRAZOLE [Concomitant]
     Active Substance: OMEPRAZOLE
  26. PRAVASTATIN [Concomitant]
     Active Substance: PRAVASTATIN
  27. PRAVASTATIN SODIUM [Concomitant]
     Active Substance: PRAVASTATIN SODIUM
  28. PROAIR HFA [Concomitant]
     Active Substance: ALBUTEROL SULFATE
  29. NORVASC [Concomitant]
     Active Substance: AMLODIPINE BESYLATE
  30. LOSARTAN [Concomitant]
     Active Substance: LOSARTAN
  31. LIPITOR [Concomitant]
     Active Substance: ATORVASTATIN CALCIUM
  32. ALPRAZOLAM [Concomitant]
     Active Substance: ALPRAZOLAM

REACTIONS (15)
  - Osteoporosis [Unknown]
  - Hand fracture [Recovered/Resolved]
  - Lower limb fracture [Unknown]
  - Renal disorder [Unknown]
  - Renal impairment [Unknown]
  - Renal failure [Not Recovered/Not Resolved]
  - Ankle fracture [Not Recovered/Not Resolved]
  - Bone demineralisation [Not Recovered/Not Resolved]
  - Emotional distress [Not Recovered/Not Resolved]
  - Anhedonia [Not Recovered/Not Resolved]
  - Economic problem [Not Recovered/Not Resolved]
  - Depression [Not Recovered/Not Resolved]
  - Anxiety [Not Recovered/Not Resolved]
  - Pain [Not Recovered/Not Resolved]
  - Blood creatinine increased [Unknown]

NARRATIVE: CASE EVENT DATE: 20120101
